FAERS Safety Report 23364057 (Version 2)
Quarter: 2024Q1

REPORT INFORMATION
  Report Type: Report from Study
  Country: DE (occurrence: DE)
  Receive Date: 20240104
  Receipt Date: 20240112
  Transmission Date: 20240410
  Serious: Yes (Other)
  Sender: FDA-Public Use
  Company Number: DE-JNJFOC-20231272160

PATIENT
  Sex: Male

DRUGS (5)
  1. ZYTIGA [Suspect]
     Active Substance: ABIRATERONE ACETATE
     Indication: Hormone-dependent prostate cancer
     Route: 048
  2. DOCETAXEL [Suspect]
     Active Substance: DOCETAXEL\DOCETAXEL ANHYDROUS
     Indication: Hormone-dependent prostate cancer
     Dosage: 75 MG/KG2 WAS ADMINISTERED AT 3-WEEK INTERVALS WITH UP TO 6 CYCLES.
     Route: 042
  3. PREDNISOLONE [Concomitant]
     Active Substance: PREDNISOLONE
     Indication: Hormone-dependent prostate cancer
     Route: 065
  4. LEUPROLIDE ACETATE [Concomitant]
     Active Substance: LEUPROLIDE ACETATE
     Indication: Hormone-dependent prostate cancer
  5. TRIPTORELIN [Concomitant]
     Active Substance: TRIPTORELIN
     Indication: Hormone-dependent prostate cancer

REACTIONS (8)
  - Febrile neutropenia [Unknown]
  - Gastrointestinal infection [Unknown]
  - Polyneuropathy [Unknown]
  - Mucosal inflammation [Unknown]
  - Dry mouth [Unknown]
  - Weight decreased [Unknown]
  - Fatigue [Unknown]
  - Infection [Unknown]
